FAERS Safety Report 24689317 (Version 3)
Quarter: 2025Q1

REPORT INFORMATION
  Report Type: Spontaneous
  Country: US (occurrence: US)
  Receive Date: 20241203
  Receipt Date: 20250121
  Transmission Date: 20250409
  Serious: Yes (Hospitalization, Other)
  Sender: UNITED THERAPEUTICS
  Company Number: US-UNITED THERAPEUTICS-UNT-2024-037278

PATIENT
  Sex: Female
  Weight: 43.084 kg

DRUGS (37)
  1. TYVASO [Suspect]
     Active Substance: TREPROSTINIL
     Indication: Pulmonary arterial hypertension
     Dosage: 54 ?G, QID
     Dates: start: 2024
  2. TYVASO [Suspect]
     Active Substance: TREPROSTINIL
  3. ATORVASTATIN CALCIUM [Concomitant]
     Active Substance: ATORVASTATIN CALCIUM
     Indication: Product used for unknown indication
  4. VITAMIN C [Concomitant]
     Active Substance: ASCORBIC ACID
     Indication: Product used for unknown indication
  5. METOPROLOL TARTRATE [Concomitant]
     Active Substance: METOPROLOL TARTRATE
     Indication: Product used for unknown indication
  6. PROTONIX [Concomitant]
     Active Substance: PANTOPRAZOLE SODIUM
     Indication: Product used for unknown indication
  7. SELENIUM [Concomitant]
     Active Substance: SELENIUM
     Indication: Product used for unknown indication
  8. ACTEMRA ACTPEN [Concomitant]
     Active Substance: TOCILIZUMAB
     Indication: Product used for unknown indication
  9. BUMETANIDE [Concomitant]
     Active Substance: BUMETANIDE
     Indication: Product used for unknown indication
  10. VITAMIN D3 [Concomitant]
     Active Substance: CHOLECALCIFEROL
     Indication: Product used for unknown indication
  11. SILDENAFIL CITRATE [Concomitant]
     Active Substance: SILDENAFIL CITRATE
     Indication: Product used for unknown indication
  12. VITAMIN E [Concomitant]
     Active Substance: .ALPHA.-TOCOPHEROL
     Indication: Product used for unknown indication
  13. XARELTO [Concomitant]
     Active Substance: RIVAROXABAN
     Indication: Product used for unknown indication
  14. ZINC GLUCONATE [Concomitant]
     Active Substance: ZINC GLUCONATE
     Indication: Product used for unknown indication
  15. OXYGEN [Concomitant]
     Active Substance: OXYGEN
     Indication: Product used for unknown indication
  16. CLOBETASOL PROPIONATE [Concomitant]
     Active Substance: CLOBETASOL PROPIONATE
     Indication: Product used for unknown indication
  17. FOSAMAX [Concomitant]
     Active Substance: ALENDRONATE SODIUM
     Indication: Product used for unknown indication
  18. METOLAZONE [Concomitant]
     Active Substance: METOLAZONE
     Indication: Product used for unknown indication
  19. PENTOXIFYLLINE [Concomitant]
     Active Substance: PENTOXIFYLLINE
     Indication: Product used for unknown indication
  20. ALBUTEROL\IPRATROPIUM [Concomitant]
     Active Substance: ALBUTEROL\IPRATROPIUM
     Indication: Product used for unknown indication
  21. Nitrobid [Concomitant]
     Indication: Product used for unknown indication
  22. CARAFATE [Concomitant]
     Active Substance: SUCRALFATE
     Indication: Product used for unknown indication
  23. ACETAMINOPHEN\HYDROCODONE [Concomitant]
     Active Substance: ACETAMINOPHEN\HYDROCODONE
     Indication: Product used for unknown indication
  24. ELIQUIS [Concomitant]
     Active Substance: APIXABAN
     Indication: Product used for unknown indication
  25. ALBUTEROL SULFATE [Concomitant]
     Active Substance: ALBUTEROL SULFATE
     Indication: Product used for unknown indication
  26. DIETARY SUPPLEMENT [Concomitant]
     Active Substance: DIETARY SUPPLEMENT
     Indication: Product used for unknown indication
  27. COENZYME Q10 [Concomitant]
     Active Substance: DIETARY SUPPLEMENT\UBIDECARENONE
     Indication: Product used for unknown indication
  28. POTASSIUM CHLORIDE [Concomitant]
     Active Substance: POTASSIUM CHLORIDE
     Indication: Product used for unknown indication
  29. SPIRONOLACTONE [Concomitant]
     Active Substance: SPIRONOLACTONE
     Indication: Product used for unknown indication
  30. TRIAMCINOLONE ACETONIDE [Concomitant]
     Active Substance: TRIAMCINOLONE ACETONIDE
     Indication: Product used for unknown indication
  31. CELLCEPT [Concomitant]
     Active Substance: MYCOPHENOLATE MOFETIL
     Indication: Product used for unknown indication
  32. CIPROFLOXACIN HYDROCHLORIDE [Concomitant]
     Active Substance: CIPROFLOXACIN HYDROCHLORIDE
     Indication: Product used for unknown indication
  33. VITAMINS [Concomitant]
     Active Substance: VITAMINS
     Indication: Product used for unknown indication
  34. ASPIRIN [Concomitant]
     Active Substance: ASPIRIN
     Indication: Product used for unknown indication
  35. MAGNESIUM OXIDE [Concomitant]
     Active Substance: MAGNESIUM OXIDE
     Indication: Product used for unknown indication
  36. PANTOPRAZOLE SODIUM [Concomitant]
     Active Substance: PANTOPRAZOLE SODIUM
     Indication: Product used for unknown indication
  37. SOTATERCEPT [Concomitant]
     Active Substance: SOTATERCEPT
     Indication: Product used for unknown indication

REACTIONS (7)
  - Renal failure [Unknown]
  - Pulmonary oedema [Unknown]
  - Pericardial effusion [Unknown]
  - Scleroderma [Unknown]
  - Skin discolouration [Unknown]
  - Pain [Unknown]
  - Impaired healing [Unknown]

NARRATIVE: CASE EVENT DATE: 20240101
